FAERS Safety Report 16229301 (Version 3)
Quarter: 2019Q4

REPORT INFORMATION
  Report Type: Spontaneous
  Country: CN (occurrence: CN)
  Receive Date: 20190423
  Receipt Date: 20191127
  Transmission Date: 20200122
  Serious: Yes (Life-Threatening, Other)
  Sender: FDA-Public Use
  Company Number: CN-ASTRAZENECA-2019SE59263

PATIENT
  Age: 28664 Day
  Sex: Male
  Weight: 64 kg

DRUGS (2)
  1. BUDESONIDE. [Suspect]
     Active Substance: BUDESONIDE
     Indication: BRONCHITIS CHRONIC
     Dosage: 2.0ML UNKNOWN
     Route: 055
     Dates: start: 20190409, end: 20190409
  2. TERBUTALINE SULPHATE [Suspect]
     Active Substance: TERBUTALINE SULFATE
     Indication: BRONCHITIS CHRONIC
     Dosage: 2.0ML UNKNOWN
     Route: 055
     Dates: start: 20190409, end: 20190409

REACTIONS (5)
  - Dyspnoea [Recovering/Resolving]
  - Tachycardia [Recovering/Resolving]
  - Cyanosis [Recovering/Resolving]
  - Wheezing [Recovering/Resolving]
  - Cardiac disorder [Recovering/Resolving]

NARRATIVE: CASE EVENT DATE: 20190409
